FAERS Safety Report 20517325 (Version 1)
Quarter: 2022Q1

REPORT INFORMATION
  Report Type: Spontaneous
  Country: GB (occurrence: GB)
  Receive Date: 20220225
  Receipt Date: 20220225
  Transmission Date: 20220423
  Serious: Yes (Other)
  Sender: FDA-Public Use
  Company Number: GB-SA-2022SA053492

PATIENT
  Age: 41 Year
  Sex: Female

DRUGS (3)
  1. DOCETAXEL [Suspect]
     Active Substance: DOCETAXEL
     Indication: Breast cancer metastatic
     Dosage: QCY (FIRST CYCLE OF TRIPLE CHEMOTHERAPY)
     Dates: start: 2020
  2. TRASTUZUMAB [Suspect]
     Active Substance: TRASTUZUMAB
     Indication: Breast cancer metastatic
     Dosage: QCY (FIRST CYCLE OF TRIPLE CHEMOTHERAPY)
     Dates: start: 2020
  3. PERTUZUMAB [Suspect]
     Active Substance: PERTUZUMAB
     Indication: Breast cancer metastatic
     Dosage: QCY (FIRST CYCLE OF TRIPLE CHEMOTHERAPY)
     Dates: start: 2020

REACTIONS (10)
  - Corneal infiltrates [Recovered/Resolved]
  - Visual impairment [Recovered/Resolved]
  - Photophobia [Recovered/Resolved]
  - Dry eye [Recovered/Resolved]
  - Conjunctival hyperaemia [Recovered/Resolved]
  - Eye disorder [Recovered/Resolved]
  - Punctate keratitis [Recovered/Resolved]
  - Corneal oedema [Recovered/Resolved]
  - Keratitis [Recovered/Resolved]
  - Exercise tolerance decreased [Unknown]

NARRATIVE: CASE EVENT DATE: 20200401
